FAERS Safety Report 25134625 (Version 2)
Quarter: 2025Q3

REPORT INFORMATION
  Report Type: Report from Study
  Country: US (occurrence: US)
  Receive Date: 20250328
  Receipt Date: 20250809
  Transmission Date: 20251020
  Serious: Yes (Hospitalization, Other)
  Sender: ALEXION PHARMACEUTICALS
  Company Number: US-AstraZeneca-CH-00833428A

PATIENT
  Age: 81 Year
  Sex: Male

DRUGS (1)
  1. ACALABRUTINIB [Suspect]
     Active Substance: ACALABRUTINIB
     Indication: Mantle cell lymphoma
     Dosage: 100 MILLIGRAM, BID
     Dates: start: 20220531

REACTIONS (6)
  - Pneumonia [Unknown]
  - Influenza [Unknown]
  - Cardiac failure [Unknown]
  - Fall [Unknown]
  - Head injury [Unknown]
  - Product dose omission issue [Unknown]
